FAERS Safety Report 7507943-0 (Version None)
Quarter: 2011Q2

REPORT INFORMATION
  Report Type: 
  Country: None (occurrence: None)
  Receive Date: 20110527
  Receipt Date: 20110513
  Transmission Date: 20111010
  Serious: Yes (Hospitalization)
  Sender: FDA-Public Use
  Company Number: CA-JNJFOC-20110507275

PATIENT
  Sex: Male

DRUGS (3)
  1. TYLENOL W/ CODEINE NO. 3 [Concomitant]
  2. CELEBREX [Concomitant]
  3. REMICADE [Suspect]
     Indication: CROHN'S DISEASE
     Route: 042
     Dates: start: 20090101

REACTIONS (4)
  - TENDONITIS [None]
  - MUSCLE STRAIN [None]
  - HEADACHE [None]
  - PAIN [None]
